FAERS Safety Report 8138018-8 (Version None)
Quarter: 2012Q1

REPORT INFORMATION
  Report Type: 
  Country: None (occurrence: None)
  Receive Date: 20120213
  Receipt Date: 20120203
  Transmission Date: 20120608
  Serious: Yes (Hospitalization, Disabling)
  Sender: FDA-Public Use
  Company Number: 2012NUEUSA00063

PATIENT
  Age: 85 Year
  Sex: Female

DRUGS (11)
  1. INSULIN (NSULIN) [Concomitant]
  2. LEXAPRO [Concomitant]
  3. ATIVAN [Concomitant]
  4. NUEDEXTA [Suspect]
     Indication: AFFECT LABILITY
     Dosage: 1 CAP, QD, ORAL  : 1 CAP, BID, ORAL
     Route: 048
     Dates: start: 20111201
  5. NUEDEXTA [Suspect]
     Indication: AFFECT LABILITY
     Dosage: 1 CAP, QD, ORAL  : 1 CAP, BID, ORAL
     Route: 048
     Dates: start: 20111201
  6. TOPROL-XL [Concomitant]
  7. HYDROCODONE BITARTRATE [Concomitant]
  8. VITAMIN B-12 [Concomitant]
  9. ZANAFLEX [Concomitant]
  10. ZYPREXA [Concomitant]
  11. LISINOPRIL [Concomitant]

REACTIONS (1)
  - CEREBROVASCULAR ACCIDENT [None]
